FAERS Safety Report 21490529 (Version 2)
Quarter: 2022Q4

REPORT INFORMATION
  Report Type: Spontaneous
  Country: CA (occurrence: CA)
  Receive Date: 20221021
  Receipt Date: 20221203
  Transmission Date: 20230113
  Serious: Yes (Death)
  Sender: FDA-Public Use
  Company Number: CA-NOVARTISPH-NVSC2022CA216607

PATIENT
  Sex: Male

DRUGS (2)
  1. VOTRIENT [Suspect]
     Active Substance: PAZOPANIB HYDROCHLORIDE
     Indication: Ewing^s sarcoma
     Dosage: 600 MG, QD
     Route: 048
     Dates: start: 20210710
  2. VOTRIENT [Suspect]
     Active Substance: PAZOPANIB HYDROCHLORIDE
     Dosage: 800 MG, QD (FROM MID JUL)
     Route: 048
     Dates: start: 202107, end: 20210831

REACTIONS (3)
  - Ewing^s sarcoma [Fatal]
  - Malignant neoplasm progression [Fatal]
  - Drug ineffective [Unknown]
